FAERS Safety Report 18924637 (Version 1)
Quarter: 2021Q1

REPORT INFORMATION
  Report Type: Spontaneous
  Country: US (occurrence: US)
  Receive Date: 20210223
  Receipt Date: 20210223
  Transmission Date: 20210420
  Serious: No
  Sender: FDA-Public Use
  Company Number: US-ASTRAZENECA-2021A051601

PATIENT
  Sex: Male
  Weight: 88.5 kg

DRUGS (2)
  1. PREDISONE [Suspect]
     Active Substance: PREDNISONE
     Dosage: 40 TO 60 MG DAILY
     Route: 065
  2. FASENRA [Suspect]
     Active Substance: BENRALIZUMAB
     Indication: ASTHMA
     Dosage: UNKNOWN
     Route: 058
     Dates: start: 201912

REACTIONS (2)
  - Dry skin [Unknown]
  - Treatment noncompliance [Unknown]
